FAERS Safety Report 9806048 (Version 1)
Quarter: 2014Q1

REPORT INFORMATION
  Report Type: Spontaneous
  Country: GB (occurrence: None)
  Receive Date: 20140107
  Receipt Date: 20140107
  Transmission Date: 20141002
  Serious: Yes (Hospitalization)
  Sender: FDA-Public Use
  Company Number: AUR-APL-2013-10942

PATIENT
  Age: 70 Year
  Sex: Female

DRUGS (15)
  1. GABAPENTIN [Suspect]
     Indication: BURNING SENSATION
     Route: 048
     Dates: start: 20131114
  2. GABAPENTIN [Suspect]
     Indication: PAIN IN EXTREMITY
     Route: 048
     Dates: start: 20131114
  3. AMITRIPTYLINE (AMITRIPTYLINE) [Concomitant]
  4. ATORVASTATIN (ATORVASTATIN) [Concomitant]
  5. BENDROFLUMETHIAZIDE (BENDROFLUMETHIAZIDE) [Concomitant]
  6. CANDESARTAN (CANDESARTAN) [Concomitant]
  7. CHLORAMPHENICOL (CHLORAMPHENICOL) [Concomitant]
  8. COLECALCIFEROL (COLECALCIFEROL) [Concomitant]
  9. DEXAMETHASONE (DEXAMETHASONE) [Concomitant]
  10. LANSOPRAZOLE (LANSOPRAZOLE) [Concomitant]
  11. NAPROXEN (NAPROXEN) [Concomitant]
  12. SENNA (SENNA ALEXANDRINA) [Concomitant]
  13. SERTRALINE (SERTRALINE) [Concomitant]
  14. SYSTANE (RHINARIS) [Concomitant]
  15. ZOPICLONE (ZOPICLONE) [Concomitant]

REACTIONS (4)
  - Nervous system disorder [None]
  - General physical health deterioration [None]
  - Somnolence [None]
  - Blood sodium abnormal [None]
